FAERS Safety Report 12955898 (Version 1)
Quarter: 2016Q4

REPORT INFORMATION
  Report Type: Spontaneous
  Country: DE (occurrence: DE)
  Receive Date: 20161118
  Receipt Date: 20161118
  Transmission Date: 20170207
  Serious: Yes (Other)
  Sender: FDA-Public Use
  Company Number: DE-JNJFOC-20161109488

PATIENT
  Age: 58 Year
  Sex: Female

DRUGS (1)
  1. STELARA [Suspect]
     Active Substance: USTEKINUMAB
     Indication: PSORIASIS
     Route: 042
     Dates: start: 20160927

REACTIONS (11)
  - Dental discomfort [Unknown]
  - Memory impairment [Unknown]
  - Depression [Unknown]
  - Product use issue [Unknown]
  - Dizziness [Unknown]
  - Nausea [Unknown]
  - Arthralgia [Unknown]
  - Off label use [Unknown]
  - Sudden onset of sleep [Unknown]
  - Pharyngeal inflammation [Unknown]
  - Back pain [Unknown]

NARRATIVE: CASE EVENT DATE: 20160927
